FAERS Safety Report 16577715 (Version 1)
Quarter: 2019Q3

REPORT INFORMATION
  Report Type: Spontaneous
  Country: FR (occurrence: FR)
  Receive Date: 20190716
  Receipt Date: 20190716
  Transmission Date: 20191004
  Serious: Yes (Other)
  Sender: FDA-Public Use
  Company Number: FR-MYLANLABS-2019M1065603

PATIENT
  Age: 52 Year
  Sex: Female

DRUGS (4)
  1. MIANSERIN [Interacting]
     Active Substance: MIANSERIN
     Indication: DEPRESSION
     Route: 065
  2. FLUOXETINE [Suspect]
     Active Substance: FLUOXETINE HYDROCHLORIDE
     Indication: DEPRESSION
     Route: 065
  3. NALMEFENE [Interacting]
     Active Substance: NALMEFENE
     Indication: ALCOHOLISM
     Route: 065
     Dates: start: 201606
  4. CYAMEMAZINE [Concomitant]
     Active Substance: CYAMEMAZINE
     Indication: DRUG THERAPY
     Route: 065

REACTIONS (3)
  - Alcohol interaction [Recovered/Resolved]
  - Drug interaction [Recovered/Resolved]
  - Sleep apnoea syndrome [Recovered/Resolved]

NARRATIVE: CASE EVENT DATE: 201610
